FAERS Safety Report 23879385 (Version 1)
Quarter: 2024Q2

REPORT INFORMATION
  Report Type: Spontaneous
  Country: US (occurrence: None)
  Receive Date: 20240520
  Receipt Date: 20240520
  Transmission Date: 20240716
  Serious: Yes (Hospitalization)
  Sender: FDA-Public Use
  Company Number: None

PATIENT
  Age: 68 Year
  Sex: Female
  Weight: 72.9 kg

DRUGS (1)
  1. REMICADE [Suspect]
     Active Substance: INFLIXIMAB
     Indication: Psoriatic arthropathy
     Dosage: 600 MG EVERY 4 WEEKS INTRAVENOUS
     Route: 042
     Dates: start: 20180803, end: 20240515

REACTIONS (12)
  - Illness [None]
  - Disease recurrence [None]
  - Inappropriate schedule of product administration [None]
  - SARS-CoV-2 test positive [None]
  - Sepsis [None]
  - Therapy interrupted [None]
  - Gout [None]
  - Breast cancer [None]
  - Type 2 diabetes mellitus [None]
  - Hypertension [None]
  - Chronic kidney disease [None]
  - Myocardial infarction [None]

NARRATIVE: CASE EVENT DATE: 20240504
